FAERS Safety Report 21363276 (Version 1)
Quarter: 2022Q3

REPORT INFORMATION
  Report Type: Spontaneous
  Country: FR (occurrence: FR)
  Receive Date: 20220922
  Receipt Date: 20220922
  Transmission Date: 20221027
  Serious: Yes (Hospitalization)
  Sender: FDA-Public Use
  Company Number: FR-AUROBINDO-AUR-APL-2022-037280

PATIENT
  Age: 79 Year
  Sex: Male

DRUGS (1)
  1. BELINOSTAT [Suspect]
     Active Substance: BELINOSTAT
     Indication: Product used for unknown indication
     Dosage: 750 DAY 1 TO DAY 5 (CYCLE 1)
     Route: 042
     Dates: start: 20220808, end: 20220812

REACTIONS (3)
  - Diarrhoea [Recovered/Resolved]
  - Abdominal pain [Recovered/Resolved]
  - Decreased appetite [Recovered/Resolved]

NARRATIVE: CASE EVENT DATE: 20220817
